FAERS Safety Report 20012017 (Version 5)
Quarter: 2023Q4

REPORT INFORMATION
  Report Type: Report from Study
  Country: US (occurrence: US)
  Receive Date: 20211029
  Receipt Date: 20231005
  Transmission Date: 20240110
  Serious: Yes (Hospitalization, Other)
  Sender: FDA-Public Use
  Company Number: US-TAKEDA-US201936954

PATIENT
  Sex: Male
  Weight: 79 kg

DRUGS (42)
  1. HUMAN IMMUNOGLOBULIN G [Suspect]
     Active Substance: HUMAN IMMUNOGLOBULIN G
     Indication: Hypergammaglobulinaemia
     Dosage: 20 MILLIGRAM, Q2WEEKS
     Route: 058
  2. HUMAN IMMUNOGLOBULIN G [Suspect]
     Active Substance: HUMAN IMMUNOGLOBULIN G
     Indication: Immunodeficiency
     Dosage: 20 GRAM, Q2WEEKS
     Route: 058
     Dates: start: 20180930
  3. HUMAN IMMUNOGLOBULIN G [Suspect]
     Active Substance: HUMAN IMMUNOGLOBULIN G
     Dosage: 20 MILLIGRAM, Q2WEEKS
     Route: 058
     Dates: start: 20190928
  4. ACETAMINOPHEN [Concomitant]
     Active Substance: ACETAMINOPHEN
     Dosage: UNK
  5. DIPHENHYDRAMINE [Concomitant]
     Active Substance: DIPHENHYDRAMINE
     Dosage: UNK
  6. EPINEPHRINE [Concomitant]
     Active Substance: EPINEPHRINE
     Dosage: UNK
  7. LIDOCAINE [Concomitant]
     Active Substance: LIDOCAINE
  8. LASIX [Concomitant]
     Active Substance: FUROSEMIDE
     Dosage: UNK
  9. FLONASE [Concomitant]
     Active Substance: FLUTICASONE PROPIONATE
     Dosage: UNK
  10. BONIVA [Concomitant]
     Active Substance: IBANDRONATE SODIUM
     Dosage: UNK
  11. ADVAIR HFA [Concomitant]
     Active Substance: FLUTICASONE PROPIONATE\SALMETEROL XINAFOATE
     Dosage: UNK
  12. VALSARTAN [Concomitant]
     Active Substance: VALSARTAN
     Dosage: UNK
  13. TEA [Concomitant]
     Active Substance: TEA LEAF
     Dosage: UNK
  14. SIMVASTATIN [Concomitant]
     Active Substance: SIMVASTATIN
     Dosage: UNK
  15. VITAMIN C [Concomitant]
     Active Substance: ASCORBIC ACID
  16. VITAMIN D3 [Concomitant]
     Active Substance: CHOLECALCIFEROL
  17. XARELTO [Concomitant]
     Active Substance: RIVAROXABAN
  18. BUPROPION HYDROCHLORIDE [Concomitant]
     Active Substance: BUPROPION HYDROCHLORIDE
     Dosage: UNK
  19. FLUTICASONE PROPIONATE [Concomitant]
     Active Substance: FLUTICASONE PROPIONATE
     Dosage: UNK
  20. ANDROGEL [Concomitant]
     Active Substance: TESTOSTERONE
     Dosage: UNK
  21. SODIUM CHLORIDE [Concomitant]
     Active Substance: SODIUM CHLORIDE
     Dosage: UNK
  22. NYQUIL CHILDRENS [Concomitant]
     Dosage: UNK
  23. EPIGALLOCATECHIN GALLATE [Concomitant]
     Active Substance: EPIGALLOCATECHIN GALLATE
  24. Echinacea goldenseal [Concomitant]
     Dosage: UNK
  25. PREDNISONE [Concomitant]
     Active Substance: PREDNISONE
     Dosage: UNK
  26. PHENAZOPYRIDINE HYDROCHLORIDE [Concomitant]
     Active Substance: PHENAZOPYRIDINE HYDROCHLORIDE
     Dosage: UNK
  27. HERBALS [Concomitant]
     Active Substance: HERBALS
     Dosage: UNK
  28. EUCALYPTOL [Concomitant]
     Active Substance: EUCALYPTOL
     Dosage: UNK
  29. TAMSULOSIN HYDROCHLORIDE [Concomitant]
     Active Substance: TAMSULOSIN HYDROCHLORIDE
     Dosage: UNK
  30. CODEINE\PROMETHAZINE [Concomitant]
     Active Substance: CODEINE\PROMETHAZINE
     Dosage: UNK
  31. IBANDRONATE SODIUM [Concomitant]
     Active Substance: IBANDRONATE SODIUM
     Dosage: UNK
  32. LISINOPRIL [Concomitant]
     Active Substance: LISINOPRIL
     Dosage: UNK
  33. CARVEDILOL [Concomitant]
     Active Substance: CARVEDILOL
     Dosage: UNK
  34. Vick [Concomitant]
     Dosage: UNK
  35. ESCITALOPRAM OXALATE [Concomitant]
     Active Substance: ESCITALOPRAM OXALATE
  36. ELIQUIS [Concomitant]
     Active Substance: APIXABAN
     Dosage: UNK
  37. METOPROLOL SUCCINATE [Concomitant]
     Active Substance: METOPROLOL SUCCINATE
     Dosage: UNK
  38. POTASSIUM CHLORIDE [Concomitant]
     Active Substance: POTASSIUM CHLORIDE
     Dosage: UNK
  39. HERBALS\TURMERIC [Concomitant]
     Active Substance: HERBALS\TURMERIC
     Dosage: UNK
  40. XYOSTED [Concomitant]
     Active Substance: TESTOSTERONE ENANTHATE
     Dosage: UNK
  41. Glucosamin chondroitin [Concomitant]
     Dosage: UNK
  42. DIPHENHYDRAMINE HYDROCHLORIDE [Concomitant]
     Active Substance: DIPHENHYDRAMINE HYDROCHLORIDE
     Dosage: UNK
     Route: 065

REACTIONS (7)
  - Prostatic disorder [Unknown]
  - Post procedural haemorrhage [Unknown]
  - COVID-19 [Unknown]
  - Nail hypertrophy [Unknown]
  - Application site laceration [Unknown]
  - Pruritus [Unknown]
  - Product dose omission issue [Unknown]
